FAERS Safety Report 26149013 (Version 2)
Quarter: 2025Q4

REPORT INFORMATION
  Report Type: Spontaneous
  Country: US (occurrence: US)
  Receive Date: 20251212
  Receipt Date: 20251230
  Transmission Date: 20260118
  Serious: Yes (Hospitalization)
  Sender: ALKEM
  Company Number: None

PATIENT
  Age: 57 Year
  Sex: Male

DRUGS (2)
  1. ITRACONAZOLE [Suspect]
     Active Substance: ITRACONAZOLE
     Indication: Pulmonary histoplasmosis
     Dosage: 500 MILLIGRAM, BID
     Route: 048
  2. POSACONAZOLE [Suspect]
     Active Substance: POSACONAZOLE
     Indication: Pulmonary histoplasmosis
     Dosage: 300 MILLIGRAM, QD
     Route: 065

REACTIONS (4)
  - Apparent mineralocorticoid excess [Recovered/Resolved]
  - Gastrointestinal disorder [Unknown]
  - Drug level above therapeutic [Unknown]
  - Treatment noncompliance [Unknown]
